FAERS Safety Report 12049874 (Version 2)
Quarter: 2017Q1

REPORT INFORMATION
  Report Type: Spontaneous
  Country: US (occurrence: US)
  Receive Date: 20160209
  Receipt Date: 20170131
  Transmission Date: 20170428
  Serious: No
  Sender: FDA-Public Use
  Company Number: US-ABBVIE-15P-163-1420710-00

PATIENT

DRUGS (1)
  1. HUMIRA [Suspect]
     Active Substance: ADALIMUMAB
     Indication: PRODUCT USED FOR UNKNOWN INDICATION
     Route: 058

REACTIONS (10)
  - Seasonal affective disorder [Unknown]
  - Juvenile idiopathic arthritis [Unknown]
  - Depression [Unknown]
  - Fibromyalgia [Unknown]
  - Pain [Unknown]
  - Activities of daily living impaired [Unknown]
  - Initial insomnia [Unknown]
  - Injection site pain [Unknown]
  - Gait disturbance [Unknown]
  - Fatigue [Unknown]
